FAERS Safety Report 8507500-3 (Version None)
Quarter: 2012Q3

REPORT INFORMATION
  Report Type: 
  Country: None (occurrence: None)
  Receive Date: 20120713
  Receipt Date: 20120705
  Transmission Date: 20120928
  Serious: Yes (Other)
  Sender: FDA-Public Use
  Company Number: FR-BRISTOL-MYERS SQUIBB COMPANY-15361140

PATIENT
  Age: 29 Year
  Sex: Female

DRUGS (10)
  1. LEVOTHYROXINE SODIUM [Concomitant]
  2. ENOXAPARIN [Suspect]
     Indication: EMBOLISM
     Route: 058
     Dates: start: 20101021, end: 20101022
  3. NEXIUM [Concomitant]
     Dates: start: 20101021
  4. WARFARIN SODIUM [Suspect]
     Indication: EMBOLISM
     Route: 048
     Dates: start: 20101021, end: 20101021
  5. LEPTICUR [Concomitant]
  6. PLACEBO [Suspect]
     Indication: EMBOLISM
     Dosage: WITH ENOX: SC  END DATE 22OCT10. WITH API: ORAL END DATE 22OCT10 WITH WAR: ORAL END DATE 21OCT10
     Dates: start: 20101021, end: 20101001
  7. APIXABAN [Suspect]
     Indication: EMBOLISM
     Route: 048
     Dates: start: 20101021, end: 20101022
  8. PROPRANOLOL [Concomitant]
  9. ABILIFY [Suspect]
  10. IXEL [Suspect]

REACTIONS (2)
  - MENTAL DISORDER [None]
  - CONDITION AGGRAVATED [None]
